FAERS Safety Report 20661284 (Version 1)
Quarter: 2022Q2

REPORT INFORMATION
  Report Type: Report from Study
  Country: US (occurrence: US)
  Receive Date: 20220401
  Receipt Date: 20220401
  Transmission Date: 20220721
  Serious: Yes (Hospitalization, Other)
  Sender: FDA-Public Use
  Company Number: US-TAKEDA-US201403044

PATIENT
  Sex: Male

DRUGS (3)
  1. IDURSULFASE [Suspect]
     Active Substance: IDURSULFASE
     Indication: Mucopolysaccharidosis II
     Dosage: 0.5 MILLIGRAM/KILOGRAM, UNKNOWN
     Route: 041
     Dates: start: 20080325
  2. IDURSULFASE [Suspect]
     Active Substance: IDURSULFASE
     Dosage: 0.5 MILLIGRAM/KILOGRAM, 1X/DAY:QD
     Route: 041
     Dates: start: 20080714, end: 201208
  3. IDURSULFASE [Suspect]
     Active Substance: IDURSULFASE
     Dosage: 0.5 MILLIGRAM/KILOGRAM, 1/WEEK
     Route: 041
     Dates: start: 20110321, end: 201208

REACTIONS (3)
  - Adenoidal hypertrophy [Recovered/Resolved]
  - Tonsillar hypertrophy [Recovered/Resolved]
  - Otitis media chronic [Unknown]

NARRATIVE: CASE EVENT DATE: 20090101
